FAERS Safety Report 8008687-1 (Version None)
Quarter: 2011Q4

REPORT INFORMATION
  Report Type: 
  Country: None (occurrence: None)
  Receive Date: 20111227
  Receipt Date: 20111216
  Transmission Date: 20120403
  Serious: Yes (Other)
  Sender: FDA-Public Use
  Company Number: FR-MERCK-1112USA02734

PATIENT
  Age: 86 Year
  Sex: Female

DRUGS (1)
  1. PRIMAXIN [Suspect]
     Indication: URINARY TRACT INFECTION
     Route: 042
     Dates: start: 20110713, end: 20110728

REACTIONS (2)
  - WEIGHT DECREASED [None]
  - CLOSTRIDIUM DIFFICILE COLITIS [None]
